FAERS Safety Report 4414430-5 (Version None)
Quarter: 2004Q3

REPORT INFORMATION
  Report Type: 
  Country: None (occurrence: None)
  Receive Date: 20040701
  Receipt Date: 20040405
  Transmission Date: 20050211
  Serious: Yes (Life-Threatening)
  Sender: FDA-Public Use
  Company Number: 200411984BWH

PATIENT
  Age: 77 Year
  Sex: Female

DRUGS (8)
  1. AVELOX [Suspect]
     Dosage: 400 MG, INTRAVENOUS
     Route: 042
     Dates: start: 20030923
  2. WATER PILL [Concomitant]
  3. COMBIVENT [Concomitant]
  4. SINGULAIR [Concomitant]
  5. ALBUTEROL [Concomitant]
  6. SOLU-MEDROL [Concomitant]
  7. XOPENEX [Concomitant]
  8. TORADOL [Concomitant]

REACTIONS (4)
  - ANAPHYLACTIC REACTION [None]
  - CYANOSIS [None]
  - RASH [None]
  - RESPIRATORY ARREST [None]
